FAERS Safety Report 10443188 (Version 2)
Quarter: 2014Q3

REPORT INFORMATION
  Report Type: Spontaneous
  Country: US (occurrence: US)
  Receive Date: 20140909
  Receipt Date: 20140917
  Transmission Date: 20150326
  Serious: Yes (Death)
  Sender: FDA-Public Use
  Company Number: US-009507513-1409USA002286

PATIENT
  Sex: Female

DRUGS (1)
  1. TEMODAR [Suspect]
     Active Substance: TEMOZOLOMIDE
     Indication: BRAIN NEOPLASM
     Dosage: 420 MG DAILY FOR 5 DAYS OF EACH MONTH
     Route: 048
     Dates: start: 20140310, end: 20140815

REACTIONS (1)
  - Brain neoplasm [Fatal]
